FAERS Safety Report 8819434 (Version 1)
Quarter: 2012Q4

REPORT INFORMATION
  Report Type: 
  Country: US (occurrence: US)
  Receive Date: 20121001
  Receipt Date: 20121001
  Transmission Date: 20130627
  Serious: No
  Sender: FDA-Public Use
  Company Number: US-009507513-1208USA007246

PATIENT
  Age: 53 None
  Sex: Female

DRUGS (2)
  1. PEG-INTRON [Suspect]
     Indication: HEPATITIS C
     Dosage: UNK
     Dates: start: 20120808
  2. REBETOL [Suspect]
     Indication: HEPATITIS C
     Dosage: UNK
     Dates: start: 20120808

REACTIONS (14)
  - Pain in extremity [Unknown]
  - Muscle spasms [Unknown]
  - Gait disturbance [Unknown]
  - Balance disorder [Unknown]
  - Mood swings [Unknown]
  - Crying [Unknown]
  - Injection site vesicles [Recovering/Resolving]
  - Injection site pruritus [Unknown]
  - Implant site reaction [Unknown]
  - Injection site swelling [Recovering/Resolving]
  - Poor quality sleep [Unknown]
  - Anxiety [Unknown]
  - Depression [Unknown]
  - Anxiety [Unknown]
